FAERS Safety Report 14530906 (Version 1)
Quarter: 2018Q1

REPORT INFORMATION
  Report Type: Spontaneous
  Country: US (occurrence: US)
  Receive Date: 20180213
  Receipt Date: 20180213
  Transmission Date: 20180509
  Serious: Yes (Hospitalization)
  Sender: FDA-Public Use
  Company Number: None

PATIENT
  Age: 52 Year
  Sex: Female
  Weight: 41 kg

DRUGS (13)
  1. CLONAZEPAM. [Concomitant]
     Active Substance: CLONAZEPAM
  2. OXYCODONE [Concomitant]
     Active Substance: OXYCODONE
  3. DOCUSATE-SENNA [Concomitant]
  4. SENEXON [Concomitant]
     Active Substance: SENNOSIDES A AND B
  5. PEMBROLIZUMAB. [Suspect]
     Active Substance: PEMBROLIZUMAB
     Indication: NON-SMALL CELL LUNG CANCER
     Dosage: ?          OTHER FREQUENCY:EVERY 21 DAYS;?
     Route: 041
     Dates: start: 20180202, end: 20180202
  6. AMLODIPINE [Concomitant]
     Active Substance: AMLODIPINE BESYLATE
  7. LPRATROPIUM-ALBUTEROL [Concomitant]
  8. DEXTROMETHORPHAN [Concomitant]
     Active Substance: DEXTROMETHORPHAN
  9. LIDOCAINE. [Concomitant]
     Active Substance: LIDOCAINE
  10. ALBUTEROL. [Concomitant]
     Active Substance: ALBUTEROL
  11. OXYCONTIN [Concomitant]
     Active Substance: OXYCODONE HYDROCHLORIDE
  12. BENZONATATE. [Concomitant]
     Active Substance: BENZONATATE
  13. FIORICET [Concomitant]
     Active Substance: ACETAMINOPHEN\BUTALBITAL\CAFFEINE

REACTIONS (2)
  - Chest pain [None]
  - Back pain [None]

NARRATIVE: CASE EVENT DATE: 20180212
